FAERS Safety Report 14347426 (Version 1)
Quarter: 2017Q4

REPORT INFORMATION
  Report Type: Spontaneous
  Country: US (occurrence: US)
  Receive Date: 20171229
  Receipt Date: 20171229
  Transmission Date: 20180321
  Serious: No
  Sender: FDA-Public Use
  Company Number: None

PATIENT
  Age: 67 Year
  Sex: Male
  Weight: 76.07 kg

DRUGS (2)
  1. DULOXETINE. [Suspect]
     Active Substance: DULOXETINE
     Indication: DIABETES MELLITUS
     Route: 048
     Dates: start: 20170330, end: 20170405
  2. DULOXETINE. [Suspect]
     Active Substance: DULOXETINE
     Indication: NEUROPATHY PERIPHERAL
     Route: 048
     Dates: start: 20170330, end: 20170405

REACTIONS (2)
  - Suicidal ideation [None]
  - Angina pectoris [None]

NARRATIVE: CASE EVENT DATE: 20170516
